FAERS Safety Report 7285500 (Version 20)
Quarter: 2013Q2

REPORT INFORMATION
  Report Type: Report from Study
  Country: CA (occurrence: CA)
  Receive Date: 20100219
  Receipt Date: 20130607
  Transmission Date: 20140414
  Serious: Yes (Other)
  Sender: FDA-Public Use
  Company Number: PHHY2009CA56002

PATIENT
  Age: 68 Year
  Sex: Female

DRUGS (6)
  1. SANDOSTATIN LAR [Suspect]
     Indication: ACROMEGALY
     Dosage: 20 MG EVERY 4 WEEKS
     Route: 030
     Dates: start: 20091119
  2. SANDOSTATIN LAR [Suspect]
     Dosage: 30 MG, EVERY 4 WEEKS
     Route: 030
     Dates: start: 20091119
  3. SANDOSTATIN LAR [Suspect]
     Dosage: 30 MG, EVERY 4 WEEKS
     Route: 030
     Dates: start: 20100310
  4. SANDOSTATIN LAR [Suspect]
     Dosage: 30 MG, QMO
     Route: 030
  5. SANDOSTATIN LAR [Suspect]
     Dosage: 30 MG, EVERY 4 WEEKS.
     Route: 030
  6. CHEMOTHERAPEUTICS,OTHER [Concomitant]
     Dosage: UNK UKN, UNK

REACTIONS (17)
  - Breast cancer [Unknown]
  - Breast mass [Unknown]
  - Metastasis [Unknown]
  - Metastases to liver [Unknown]
  - Type 2 diabetes mellitus [Unknown]
  - Blood pressure diastolic decreased [Unknown]
  - Blood pressure systolic increased [Unknown]
  - Heart rate decreased [Unknown]
  - Hot flush [Unknown]
  - Pain [Recovered/Resolved]
  - Chills [Unknown]
  - Hyperhidrosis [Unknown]
  - Gastrointestinal sounds abnormal [Unknown]
  - Anxiety [Unknown]
  - Hypoaesthesia [Unknown]
  - Local swelling [Unknown]
  - Diarrhoea [Unknown]
